FAERS Safety Report 18480834 (Version 12)
Quarter: 2023Q2

REPORT INFORMATION
  Report Type: Report from Study
  Country: US (occurrence: US)
  Receive Date: 20201109
  Receipt Date: 20230524
  Transmission Date: 20230722
  Serious: Yes (Hospitalization, Other)
  Sender: FDA-Public Use
  Company Number: US-NOVARTISPH-NVSC2020US300091

PATIENT
  Age: 63 Year
  Sex: Female

DRUGS (1)
  1. COSENTYX [Suspect]
     Active Substance: SECUKINUMAB
     Indication: Product used for unknown indication
     Dosage: 300 MILLIGRAM PER MILLILITRE (1 X 150 MG/ML)
     Route: 065

REACTIONS (11)
  - Fall [Unknown]
  - Road traffic accident [Unknown]
  - Lymphoma [Unknown]
  - Psoriatic arthropathy [Unknown]
  - Pain [Unknown]
  - Gait disturbance [Unknown]
  - Amnesia [Unknown]
  - Contusion [Unknown]
  - Anaemia [Unknown]
  - Dizziness [Unknown]
  - Atrioventricular block [Unknown]

NARRATIVE: CASE EVENT DATE: 20221231
